FAERS Safety Report 8469632-8 (Version None)
Quarter: 2012Q2

REPORT INFORMATION
  Report Type: 
  Country: None (occurrence: None)
  Receive Date: 20120626
  Receipt Date: 20120524
  Transmission Date: 20120825
  Serious: No
  Sender: FDA-Public Use
  Company Number: US-TEVA-340080USA

PATIENT

DRUGS (1)
  1. QNASL [Suspect]
     Indication: HYPERSENSITIVITY
     Dosage: 1 DOSE
     Dates: start: 20120511

REACTIONS (1)
  - AGEUSIA [None]
